FAERS Safety Report 21665898 (Version 2)
Quarter: 2022Q4

REPORT INFORMATION
  Report Type: Report from Study
  Country: US (occurrence: US)
  Receive Date: 20221201
  Receipt Date: 20221203
  Transmission Date: 20230112
  Serious: No
  Sender: FDA-Public Use
  Company Number: US-ABBVIE-4204625

PATIENT
  Age: 72 Year
  Sex: Male
  Weight: 79.378 kg

DRUGS (9)
  1. HUMIRA [Suspect]
     Active Substance: ADALIMUMAB
     Indication: Psoriasis
     Dosage: 40MG CF
     Route: 058
     Dates: start: 2016, end: 20221029
  2. XARELTO [Concomitant]
     Active Substance: RIVAROXABAN
     Indication: Coagulopathy
  3. covid-19 vaccine [Concomitant]
     Indication: COVID-19 immunisation
     Dosage: COVID VACCINE?ONE IN ONCE
     Route: 030
  4. LISINOPRIL [Concomitant]
     Active Substance: LISINOPRIL
     Indication: Blood pressure measurement
  5. HYDROXYZINE HYDROCHLORIDE [Concomitant]
     Active Substance: HYDROXYZINE HYDROCHLORIDE
     Indication: Pruritus
     Dosage: 25 MG
  6. OMEPRAZOLE [Concomitant]
     Active Substance: OMEPRAZOLE
     Indication: Dyspepsia
  7. LEVOTHYROXINE [Concomitant]
     Active Substance: LEVOTHYROXINE
     Indication: Thyroid disorder
  8. VITAMIN D [Concomitant]
     Active Substance: VITAMIN D NOS
     Indication: Vitamin supplementation
  9. TAMSULOSIN [Concomitant]
     Active Substance: TAMSULOSIN
     Indication: Prostatic disorder

REACTIONS (3)
  - Injection site rash [Recovering/Resolving]
  - Injection site erythema [Recovering/Resolving]
  - Injection site pruritus [Recovering/Resolving]

NARRATIVE: CASE EVENT DATE: 20221101
